FAERS Safety Report 8342661-0 (Version None)
Quarter: 2012Q2

REPORT INFORMATION
  Report Type: 
  Country: None (occurrence: None)
  Receive Date: 20120508
  Receipt Date: 20120426
  Transmission Date: 20120825
  Serious: No
  Sender: FDA-Public Use
  Company Number: US-BIOGENIDEC-2012BI014630

PATIENT
  Age: 48 Year
  Sex: Female

DRUGS (1)
  1. AVONEX [Suspect]
     Indication: MULTIPLE SCLEROSIS
     Route: 030
     Dates: start: 20120210

REACTIONS (9)
  - INFLUENZA LIKE ILLNESS [None]
  - FEELING COLD [None]
  - VISUAL ACUITY REDUCED [None]
  - BODY TEMPERATURE INCREASED [None]
  - TREMOR [None]
  - SWELLING [None]
  - PAIN [None]
  - TOOTH FRACTURE [None]
  - WEIGHT INCREASED [None]
